FAERS Safety Report 8838732 (Version 2)
Quarter: 2013Q1

REPORT INFORMATION
  Report Type: Report from Study
  Country: JP (occurrence: JP)
  Receive Date: 20121012
  Receipt Date: 20130130
  Transmission Date: 20140127
  Serious: Yes (Hospitalization, Other)
  Sender: FDA-Public Use
  Company Number: JP-009507513-1210JPN001652

PATIENT
  Age: 61 Year
  Sex: Male
  Weight: 60 kg

DRUGS (11)
  1. PEGINTRON [Suspect]
     Indication: CHRONIC HEPATITIS C
     Dosage: 1.35 MICROGRAM PER KILOGRAM, QW
     Route: 058
     Dates: end: 20120821
  2. PEGINTRON [Suspect]
     Dosage: 1.35 MICROGRAM PER KILOGRAM, QW
     Route: 058
     Dates: start: 20120911
  3. REBETOL [Suspect]
     Indication: CHRONIC HEPATITIS C
     Dosage: 200 MG, QD
     Route: 048
     Dates: end: 20120902
  4. REBETOL [Suspect]
     Dosage: 200 MG, UNK
     Route: 048
  5. TELAVIC [Suspect]
     Indication: CHRONIC HEPATITIS C
     Dosage: 1000 MG, QD
     Route: 048
     Dates: start: 20120720, end: 20120902
  6. URSO [Concomitant]
     Indication: CHRONIC HEPATITIS C
     Dosage: FORMULATION POR, 600 MG, QD
     Route: 048
  7. OMEPRAL [Concomitant]
     Indication: PROPHYLAXIS
     Dosage: FORMULATION: POR, 20 MG, QD
     Route: 048
  8. MEDROL [Concomitant]
     Indication: LIVER TRANSPLANT
     Dosage: FORMULATION: POR, 2 MG, QD
     Route: 048
  9. CELLCEPT [Concomitant]
     Indication: LIVER TRANSPLANT
     Dosage: FORMULATION: POR, 1000 MG , QD
     Route: 048
  10. NU-LOTAN TABLET 50 [Concomitant]
     Indication: HYPERTENSION
     Dosage: FORMULATION: POR, 50 MG, QD
     Route: 048
  11. NORVASC [Concomitant]
     Indication: HYPERTENSION
     Dosage: FORMULATION: POR, 5 MG, QD
     Route: 048

REACTIONS (3)
  - Cytomegalovirus enterocolitis [Recovering/Resolving]
  - Pancreatitis [Recovering/Resolving]
  - Cytomegalovirus infection [Recovering/Resolving]
